FAERS Safety Report 23083111 (Version 1)
Quarter: 2023Q4

REPORT INFORMATION
  Report Type: Spontaneous
  Country: BR (occurrence: BR)
  Receive Date: 20231019
  Receipt Date: 20231019
  Transmission Date: 20240109
  Serious: Yes (Other)
  Sender: FDA-Public Use
  Company Number: BR-SA-SAC20231018000663

PATIENT
  Age: 11 Year
  Sex: Male

DRUGS (2)
  1. SABRIL [Suspect]
     Active Substance: VIGABATRIN
     Indication: Infantile spasms
     Dosage: UNK
     Route: 065
  2. SABRIL [Suspect]
     Active Substance: VIGABATRIN
     Indication: Epilepsy

REACTIONS (1)
  - Change in seizure presentation [Unknown]
